FAERS Safety Report 4652062-4 (Version None)
Quarter: 2005Q2

REPORT INFORMATION
  Report Type: 
  Country: None (occurrence: None)
  Receive Date: 20050502
  Receipt Date: 20050420
  Transmission Date: 20051028
  Serious: Yes (Death)
  Sender: FDA-Public Use
  Company Number: Q05-015

PATIENT
  Age: 78 Year
  Sex: Female
  Weight: 57.1532 kg

DRUGS (4)
  1. QUADRAMET [Suspect]
     Indication: BREAST CANCER
     Dosage: 66.0 (MC1/KG)
     Dates: start: 20050128
  2. MS CONTIN [Concomitant]
  3. VICOPROFEN [Concomitant]
  4. DURAGESIO [Concomitant]

REACTIONS (4)
  - ASTHENIA [None]
  - BONE LESION [None]
  - BONE SCAN ABNORMAL [None]
  - PYREXIA [None]
